FAERS Safety Report 15142032 (Version 1)
Quarter: 2018Q3

REPORT INFORMATION
  Report Type: Spontaneous
  Country: US (occurrence: US)
  Receive Date: 20180713
  Receipt Date: 20180713
  Transmission Date: 20181010
  Serious: No
  Sender: FDA-Public Use
  Company Number: US-ASTELLAS-2017US030883

PATIENT
  Age: 88 Year
  Sex: Female

DRUGS (2)
  1. DICLOFENAC SODIUM. [Suspect]
     Active Substance: DICLOFENAC SODIUM
     Indication: ARTHRITIS
     Route: 061
  2. MYRBETRIQ [Suspect]
     Active Substance: MIRABEGRON
     Indication: BLADDER DISORDER
     Route: 065
     Dates: start: 20170727

REACTIONS (13)
  - Muscle spasms [Unknown]
  - Blister [Unknown]
  - Vision blurred [Unknown]
  - Dizziness [Unknown]
  - Oral mucosal blistering [Unknown]
  - Lip exfoliation [Unknown]
  - Oral pain [Unknown]
  - Oral discomfort [Unknown]
  - Musculoskeletal discomfort [Unknown]
  - Skin exfoliation [Unknown]
  - Pain in extremity [Unknown]
  - Lip pain [Unknown]
  - Arthritis [Unknown]

NARRATIVE: CASE EVENT DATE: 20170728
